FAERS Safety Report 4401132-4 (Version None)
Quarter: 2004Q3

REPORT INFORMATION
  Report Type: 
  Country: None (occurrence: None)
  Receive Date: 20040907
  Receipt Date: 20031111
  Transmission Date: 20050211
  Serious: No
  Sender: FDA-Public Use
  Company Number: US-BRISTOL-MYERS SQUIBB COMPANY-12432746

PATIENT
  Sex: Female

DRUGS (7)
  1. COUMADIN [Suspect]
     Indication: TRANSIENT ISCHAEMIC ATTACK
     Dosage: CURRENT DOSAGE: 1.5 MG M/W/F, 3 MG TU/TH/SA/SU
     Dates: start: 19970101
  2. ASPIRIN [Concomitant]
  3. NORVASC [Concomitant]
  4. DIOVAN HCT [Concomitant]
     Dosage: DIOVAN 1 DAILY EACH MORNING (160/12.5)
  5. SYNTHROID [Concomitant]
  6. ZOLOFT [Concomitant]
  7. NEURONTIN [Concomitant]

REACTIONS (1)
  - ALOPECIA [None]
